FAERS Safety Report 17769066 (Version 2)
Quarter: 2020Q2

REPORT INFORMATION
  Report Type: Spontaneous
  Country: DE (occurrence: DE)
  Receive Date: 20200512
  Receipt Date: 20200625
  Transmission Date: 20200714
  Serious: Yes (Other)
  Sender: FDA-Public Use
  Company Number: DE-BRISTOL-MYERS SQUIBB COMPANY-BMS-2020-031091

PATIENT
  Age: 57 Year
  Sex: Male
  Weight: 86.5 kg

DRUGS (1)
  1. NULOJIX [Suspect]
     Active Substance: BELATACEPT
     Indication: RENAL TRANSPLANT
     Dosage: 5 MILLIGRAM/KILOGRAM, Q4WK
     Route: 042
     Dates: start: 201908

REACTIONS (6)
  - Night sweats [Not Recovered/Not Resolved]
  - Nasopharyngitis [Unknown]
  - Product administration error [Unknown]
  - Feeling cold [Recovered/Resolved]
  - Plantar fasciitis [Unknown]
  - Off label use [Unknown]

NARRATIVE: CASE EVENT DATE: 201910
